FAERS Safety Report 19481530 (Version 2)
Quarter: 2021Q3

REPORT INFORMATION
  Report Type: Spontaneous
  Country: JP (occurrence: JP)
  Receive Date: 20210701
  Receipt Date: 20210924
  Transmission Date: 20211014
  Serious: Yes (Death, Other)
  Sender: FDA-Public Use
  Company Number: JP-ASTELLAS-2021JP010735

PATIENT
  Age: 69 Year

DRUGS (1)
  1. XOSPATA [Suspect]
     Active Substance: GILTERITINIB
     Indication: ACUTE MYELOID LEUKAEMIA
     Route: 048
     Dates: start: 20210223

REACTIONS (4)
  - Acute myeloid leukaemia recurrent [Fatal]
  - Blood creatine phosphokinase increased [Unknown]
  - Neutrophil count decreased [Unknown]
  - Blood lactate dehydrogenase increased [Unknown]
